FAERS Safety Report 26208397 (Version 1)
Quarter: 2025Q4

REPORT INFORMATION
  Report Type: Spontaneous
  Country: US (occurrence: US)
  Receive Date: 20251229
  Receipt Date: 20251229
  Transmission Date: 20260118
  Serious: No
  Sender: UROGEN PHARMA
  Company Number: US-UROGEN PHARMA LTD.-2025-UGN-000218

PATIENT

DRUGS (7)
  1. JELMYTO [Suspect]
     Active Substance: MITOMYCIN
     Indication: Urethral cancer
     Dosage: 40 MILLIGRAM, ONCE A WEEK (INSTILLATION)
     Route: 065
     Dates: start: 20251028, end: 20251028
  2. JELMYTO [Suspect]
     Active Substance: MITOMYCIN
     Dosage: 40 MILLIGRAM, ONCE A WEEK (INSTILLATION)
     Route: 065
     Dates: start: 20251111, end: 20251111
  3. JELMYTO [Suspect]
     Active Substance: MITOMYCIN
     Dosage: 40 MILLIGRAM, ONCE A WEEK (INSTILLATION)
     Route: 065
     Dates: start: 20251118, end: 20251118
  4. JELMYTO [Suspect]
     Active Substance: MITOMYCIN
     Dosage: 40 MILLIGRAM, ONCE A WEEK (INSTILLATION)
     Route: 065
     Dates: start: 20251125, end: 20251125
  5. JELMYTO [Suspect]
     Active Substance: MITOMYCIN
     Dosage: 40 MILLIGRAM, ONCE A WEEK (INSTILLATION)
     Route: 065
     Dates: start: 20251202, end: 20251202
  6. JELMYTO [Suspect]
     Active Substance: MITOMYCIN
     Dosage: 40 MILLIGRAM, ONCE A WEEK (INSTILLATION)
     Route: 065
     Dates: start: 20251209, end: 20251209
  7. ASPIRIN [Concomitant]
     Active Substance: ASPIRIN
     Indication: Blood pressure measurement
     Route: 065

REACTIONS (2)
  - Laboratory test abnormal [Recovered/Resolved]
  - Off label use [Unknown]

NARRATIVE: CASE EVENT DATE: 20250101
